FAERS Safety Report 8239973-8 (Version None)
Quarter: 2012Q1

REPORT INFORMATION
  Report Type: 
  Country: None (occurrence: None)
  Receive Date: 20120328
  Receipt Date: 20120306
  Transmission Date: 20120608
  Serious: No
  Sender: FDA-Public Use
  Company Number: US-ROXANE LABORATORIES, INC.-2012-RO-00826RO

PATIENT
  Sex: Female

DRUGS (1)
  1. PREDNISONE TAB [Suspect]
     Indication: POLYMYALGIA RHEUMATICA
     Dates: start: 20110801

REACTIONS (1)
  - HYPERTRICHOSIS [None]
